FAERS Safety Report 5148581-7 (Version None)
Quarter: 2006Q4

REPORT INFORMATION
  Report Type: 
  Country: None (occurrence: None)
  Receive Date: 20061107
  Receipt Date: 20061101
  Transmission Date: 20070319
  Serious: Yes (Death, Hospitalization)
  Sender: FDA-Public Use
  Company Number: 163-21880-06090511

PATIENT
  Age: 60 Year
  Sex: Female

DRUGS (20)
  1. REVLIMID [Suspect]
     Indication: MULTIPLE MYELOMA
     Dosage: SEE IMAGE
     Route: 048
     Dates: start: 20060901, end: 20060901
  2. REVLIMID [Suspect]
     Indication: MULTIPLE MYELOMA
     Dosage: SEE IMAGE
     Route: 048
     Dates: start: 20060901, end: 20060901
  3. REVLIMID [Suspect]
     Indication: MULTIPLE MYELOMA
     Dosage: SEE IMAGE
     Route: 048
     Dates: start: 20060901, end: 20061009
  4. DECADRON [Concomitant]
  5. CASPOFUNGIN (CASPOFUNGIN) [Concomitant]
  6. FLUCONAZOLE [Concomitant]
  7. MEROPENEM (MEROPENEM) [Concomitant]
  8. NEUPOGEN [Concomitant]
  9. EPOGEN [Concomitant]
  10. COLACE (DOCUSATE SODIUM) [Concomitant]
  11. DARVOCET-N 100 [Concomitant]
  12. ACETAMINOPHEN [Concomitant]
  13. DULCOLAX [Concomitant]
  14. ACETAMINOPHEN [Concomitant]
  15. LORAZEPAM [Concomitant]
  16. MORPHINE [Concomitant]
  17. METOCLOPRAMIDE [Concomitant]
  18. CHLORPROMAZINE [Concomitant]
  19. DIPHENHYDRAMINE HCL [Concomitant]
  20. LOPERAMIDE HCL [Concomitant]

REACTIONS (6)
  - ABDOMINAL PAIN [None]
  - AUTOLOGOUS BONE MARROW TRANSPLANTATION THERAPY [None]
  - DIARRHOEA [None]
  - DYSPNOEA [None]
  - MEAN CELL VOLUME INCREASED [None]
  - PANCYTOPENIA [None]
